FAERS Safety Report 8417985-9 (Version None)
Quarter: 2012Q2

REPORT INFORMATION
  Report Type: 
  Country: None (occurrence: None)
  Receive Date: 20120531
  Receipt Date: 20120531
  Transmission Date: 20120825
  Serious: Yes (Life-Threatening, Hospitalization, Disabling, Other)
  Sender: FDA-Public Use
  Company Number: None

PATIENT

DRUGS (2)
  1. AMIODARONE HCL [Suspect]
     Dosage: 1MG PER MINUTE /24 HRS IV
     Route: 042
     Dates: start: 20110513, end: 20110514
  2. AMIODARONE HCL [Suspect]
     Dosage: 600 MG 3 TIMES A DAY PO
     Route: 048
     Dates: start: 20110514, end: 20110516

REACTIONS (2)
  - ACUTE RESPIRATORY DISTRESS SYNDROME [None]
  - LUNG INFILTRATION [None]
